FAERS Safety Report 9220692 (Version 1)
Quarter: 2013Q1

REPORT INFORMATION
  Report Type: Spontaneous
  Country: US (occurrence: None)
  Receive Date: 20120831
  Receipt Date: 20120831
  Transmission Date: 20140127
  Serious: No
  Sender: FDA-Public Use
  Company Number: 1000030335

PATIENT
  Age: 73 Year
  Sex: Female

DRUGS (4)
  1. DALIRESP (ROFLUMILAST) (500 MICROGRAM, TABLETS) [Suspect]
     Indication: CHRONIC OBSTRUCTIVE PULMONARY DISEASE
     Route: 048
     Dates: start: 20120428
  2. ASPIRIN (ACETYSALICYLIC ACID) (ACETYLSALICYLIC ACID) [Concomitant]
  3. CRESTOR (ROSUVASTATIN CALCIUM) [Concomitant]
  4. VITAMIN (NOS) (VITAMIN (NOS ) [Concomitant]

REACTIONS (1)
  - Back pain [None]
